FAERS Safety Report 19157635 (Version 1)
Quarter: 2021Q2

REPORT INFORMATION
  Report Type: Other
  Country: CA (occurrence: CA)
  Receive Date: 20210420
  Receipt Date: 20210420
  Transmission Date: 20210717
  Serious: Yes (Hospitalization)
  Sender: FDA-Public Use
  Company Number: CA-APOTEX-2021AP009113

PATIENT
  Age: 91 Year
  Sex: Female
  Weight: 56 kg

DRUGS (2)
  1. APO?ALLOPURINOL [Suspect]
     Active Substance: ALLOPURINOL
     Indication: HYPERURICAEMIA
     Dosage: 100 MILLIGRAM, QD
     Route: 048
  2. ENSURE [NUTRIENTS NOS] [Concomitant]
     Indication: PRODUCT USED FOR UNKNOWN INDICATION
     Dosage: UNK
     Route: 065

REACTIONS (8)
  - Eye discharge [Unknown]
  - C-reactive protein increased [Unknown]
  - Eye disorder [Unknown]
  - Oropharyngeal pain [Unknown]
  - Oral discharge [Unknown]
  - Rash [Unknown]
  - Dysphagia [Unknown]
  - Diarrhoea [Unknown]
